FAERS Safety Report 22016375 (Version 2)
Quarter: 2023Q1

REPORT INFORMATION
  Report Type: Report from Study
  Country: MY (occurrence: MY)
  Receive Date: 20230221
  Receipt Date: 20230303
  Transmission Date: 20230417
  Serious: Yes (Death, Life-Threatening)
  Sender: FDA-Public Use
  Company Number: MY-002147023-NVSC2023MY039443

PATIENT
  Age: 59 Year
  Sex: Male

DRUGS (2)
  1. TASIGNA [Suspect]
     Active Substance: NILOTINIB
     Indication: Chronic myeloid leukaemia
     Dosage: 400 MG, BID
     Route: 065
  2. TASIGNA [Suspect]
     Active Substance: NILOTINIB
     Dosage: 400 MG, BID
     Route: 065
     Dates: start: 201908

REACTIONS (4)
  - COVID-19 pneumonia [Fatal]
  - Pyrexia [Fatal]
  - Dyspnoea [Fatal]
  - Diarrhoea [Fatal]

NARRATIVE: CASE EVENT DATE: 20210714
